FAERS Safety Report 4973822-6 (Version None)
Quarter: 2006Q2

REPORT INFORMATION
  Report Type: 
  Country: None (occurrence: None)
  Receive Date: 20060414
  Receipt Date: 20060111
  Transmission Date: 20061013
  Serious: Yes (Other)
  Sender: FDA-Public Use
  Company Number: US-MERCK-0601USA01593

PATIENT
  Age: 61 Year
  Sex: Female
  Weight: 147 kg

DRUGS (5)
  1. VIOXX [Suspect]
     Route: 048
     Dates: start: 20020101, end: 20030101
  2. PAXIL [Concomitant]
     Route: 065
  3. VASOTEC [Concomitant]
     Route: 065
  4. LASIX [Concomitant]
     Route: 065
  5. WARFARIN [Concomitant]
     Route: 065

REACTIONS (4)
  - CARDIAC FAILURE CONGESTIVE [None]
  - CEREBROVASCULAR ACCIDENT [None]
  - COUGH [None]
  - VENTRICULAR HYPERTROPHY [None]
